FAERS Safety Report 18868795 (Version 2)
Quarter: 2021Q3

REPORT INFORMATION
  Report Type: Other
  Country: CN (occurrence: CN)
  Receive Date: 20210210
  Receipt Date: 20210901
  Transmission Date: 20211014
  Serious: Yes (Death, Other)
  Sender: FDA-Public Use
  Company Number: CN-ROCHE-2765649

PATIENT
  Sex: Male
  Weight: 60 kg

DRUGS (1)
  1. AVASTIN [Suspect]
     Active Substance: BEVACIZUMAB
     Indication: RECTAL CANCER
     Route: 041
     Dates: start: 20170729, end: 20210114

REACTIONS (1)
  - Jaundice cholestatic [Unknown]
